FAERS Safety Report 11610815 (Version 1)
Quarter: 2015Q4

REPORT INFORMATION
  Report Type: Spontaneous
  Country: ZA (occurrence: ZA)
  Receive Date: 20151008
  Receipt Date: 20151008
  Transmission Date: 20160304
  Serious: Yes (Life-Threatening, Hospitalization)
  Sender: FDA-Public Use
  Company Number: ZA-ACTAVIS-2015-21551

PATIENT
  Age: 68 Year
  Sex: Female

DRUGS (1)
  1. ERYTHROMYCIN  (UNKNOWN) [Suspect]
     Active Substance: ERYTHROMYCIN
     Indication: ANTIBIOTIC PROPHYLAXIS
     Dosage: 500 MG, SINGLE
     Route: 042

REACTIONS (2)
  - Electrocardiogram QT prolonged [Recovered/Resolved]
  - Torsade de pointes [Recovered/Resolved]
